FAERS Safety Report 10236437 (Version 1)
Quarter: 2014Q2

REPORT INFORMATION
  Report Type: Spontaneous
  Country: RU (occurrence: RU)
  Receive Date: 20140613
  Receipt Date: 20140613
  Transmission Date: 20141212
  Serious: Yes (Other)
  Sender: FDA-Public Use
  Company Number: RU-BAYER-2014-085319

PATIENT
  Age: 43 Year
  Sex: Female
  Weight: 62.13 kg

DRUGS (1)
  1. QLAIRA [Suspect]
     Indication: CONTRACEPTION
     Dosage: UNK UNK, QD
     Route: 048
     Dates: start: 201305

REACTIONS (3)
  - Adnexa uteri mass [Not Recovered/Not Resolved]
  - Abdominal pain lower [Not Recovered/Not Resolved]
  - Abdominal discomfort [Not Recovered/Not Resolved]
